FAERS Safety Report 22597851 (Version 2)
Quarter: 2023Q2

REPORT INFORMATION
  Report Type: Spontaneous
  Country: US (occurrence: US)
  Receive Date: 20230614
  Receipt Date: 20230616
  Transmission Date: 20230722
  Serious: Yes (Other)
  Sender: FDA-Public Use
  Company Number: US-ABBVIE-5279609

PATIENT
  Sex: Female

DRUGS (1)
  1. REFRESH TEARS LUBRICANT [Suspect]
     Active Substance: CARBOXYMETHYLCELLULOSE SODIUM
     Indication: Dry eye
     Dosage: THREE DROPS ON BOTH EYES PER DAY
     Route: 047
     Dates: start: 202304

REACTIONS (2)
  - Eye operation [Unknown]
  - Product packaging difficult to open [Not Recovered/Not Resolved]
